FAERS Safety Report 9501461 (Version 1)
Quarter: 2013Q3

REPORT INFORMATION
  Report Type: Spontaneous
  Country: AU (occurrence: AU)
  Receive Date: 20130905
  Receipt Date: 20130905
  Transmission Date: 20140515
  Serious: Yes (Hospitalization)
  Sender: FDA-Public Use
  Company Number: AU-GLAXOSMITHKLINE-B0919528A

PATIENT
  Sex: Male

DRUGS (1)
  1. DUODART [Suspect]
     Indication: PRODUCT USED FOR UNKNOWN INDICATION
     Dosage: 1CAP PER DAY
     Route: 065
     Dates: start: 20130611

REACTIONS (8)
  - Cognitive disorder [Unknown]
  - Delirium [Unknown]
  - Dysphagia [Unknown]
  - Dizziness [Unknown]
  - Musculoskeletal disorder [Unknown]
  - Head injury [Unknown]
  - Judgement impaired [Unknown]
  - Muscle atrophy [Unknown]
